FAERS Safety Report 12436990 (Version 1)
Quarter: 2016Q2

REPORT INFORMATION
  Report Type: Spontaneous
  Country: US (occurrence: US)
  Receive Date: 20160606
  Receipt Date: 20160606
  Transmission Date: 20160815
  Serious: Yes (Other)
  Sender: FDA-Public Use
  Company Number: PHEH2016US013832

PATIENT
  Age: 48 Year
  Sex: Female
  Weight: 153 kg

DRUGS (1)
  1. NELARABINE [Suspect]
     Active Substance: NELARABINE
     Indication: T-CELL TYPE ACUTE LEUKAEMIA
     Dosage: UNK
     Route: 042
     Dates: start: 20160528, end: 20160601

REACTIONS (4)
  - Lacrimation increased [Unknown]
  - Erythema [Unknown]
  - Burning sensation [Unknown]
  - Chemical eye injury [Unknown]

NARRATIVE: CASE EVENT DATE: 20160602
